FAERS Safety Report 7941706-7 (Version None)
Quarter: 2011Q4

REPORT INFORMATION
  Report Type: 
  Country: None (occurrence: None)
  Receive Date: 20111128
  Receipt Date: 20111128
  Transmission Date: 20120403
  Serious: Yes (Other)
  Sender: FDA-Public Use
  Company Number: None

PATIENT
  Sex: Female
  Weight: 101.6 kg

DRUGS (1)
  1. MIRENA [Suspect]
     Indication: CONTRACEPTION
     Dosage: 52MG
     Route: 015
     Dates: start: 20111103, end: 20111125

REACTIONS (2)
  - DEVICE EXPULSION [None]
  - MENORRHAGIA [None]
